FAERS Safety Report 7663621-9 (Version None)
Quarter: 2011Q3

REPORT INFORMATION
  Report Type: 
  Country: None (occurrence: None)
  Receive Date: 20110805
  Receipt Date: 20100818
  Transmission Date: 20111222
  Serious: No
  Sender: FDA-Public Use
  Company Number: US-ABBOTT-10P-163-0664554-00

PATIENT
  Sex: Female
  Weight: 81.72 kg

DRUGS (5)
  1. FISH OIL (OTC) [Concomitant]
     Indication: PRODUCT USED FOR UNKNOWN INDICATION
  2. BAYER ASA [Concomitant]
     Indication: PRODUCT USED FOR UNKNOWN INDICATION
  3. CARISOPRODOL [Concomitant]
     Indication: PRODUCT USED FOR UNKNOWN INDICATION
     Dosage: TWICE A DAY AS NEEDED
  4. NIASPAN [Suspect]
     Indication: BLOOD CHOLESTEROL INCREASED
     Dosage: 500MG- 1/2 TABLET 7DAYS THEN 1 TABLET
     Dates: start: 20100815
  5. HYDROCODONE BITARTRATE AND ACETAMINOPHEN [Concomitant]
     Indication: PRODUCT USED FOR UNKNOWN INDICATION
     Dosage: 7.5/500 MG TWICE DAILY AS NEEDED

REACTIONS (2)
  - NAUSEA [None]
  - ABDOMINAL DISCOMFORT [None]
